FAERS Safety Report 7271593-4 (Version None)
Quarter: 2011Q1

REPORT INFORMATION
  Report Type: 
  Country: None (occurrence: None)
  Receive Date: 20110121
  Receipt Date: 20110121
  Transmission Date: 20110831
  Serious: No
  Sender: FDA-Public Use
  Company Number: None

PATIENT
  Age: 40 Year
  Sex: Female
  Weight: 77.1115 kg

DRUGS (1)
  1. ZOLPIDEM [Suspect]
     Indication: INSOMNIA
     Dosage: 1 12.5 MG PILL DAILY PO
     Route: 048
     Dates: start: 20110119, end: 20110124

REACTIONS (6)
  - INSOMNIA [None]
  - HEADACHE [None]
  - DRUG INEFFECTIVE [None]
  - FATIGUE [None]
  - IMPAIRED WORK ABILITY [None]
  - PRODUCT SUBSTITUTION ISSUE [None]
